FAERS Safety Report 4621511-X (Version None)
Quarter: 2005Q1

REPORT INFORMATION
  Report Type: 
  Country: None (occurrence: None)
  Receive Date: 20050328
  Receipt Date: 20031031
  Transmission Date: 20050727
  Serious: Yes (Life-Threatening)
  Sender: FDA-Public Use
  Company Number: 9625

PATIENT
  Age: 68 Year
  Sex: Female

DRUGS (7)
  1. METHOTREXATE [Suspect]
     Indication: POLYARTHRITIS
     Dosage: 12.5 MG WEEKLY
     Route: 058
     Dates: start: 20011001, end: 20040903
  2. LEFLUNOMIDE [Suspect]
     Indication: POLYARTHRITIS
     Dosage: 10 MG
     Route: 048
     Dates: start: 20011101, end: 20030901
  3. CITALOPRAM HYDROBROMIDE [Concomitant]
  4. HYDROCHOROTHIAZIDE/QUINAPRIL HYDROCHLORIDE [Concomitant]
  5. ATENOLOL [Concomitant]
  6. PRAVASTATIN SODIUM [Concomitant]
  7. FOLIC ACID [Concomitant]

REACTIONS (4)
  - DRUG INTERACTION [None]
  - GINGIVITIS [None]
  - PANCYTOPENIA [None]
  - WEIGHT DECREASED [None]
